FAERS Safety Report 9419354 (Version 1)
Quarter: 2013Q3

REPORT INFORMATION
  Report Type: Spontaneous
  Country: US (occurrence: US)
  Receive Date: 20130725
  Receipt Date: 20130725
  Transmission Date: 20140515
  Serious: Yes (Other)
  Sender: FDA-Public Use
  Company Number: US-GLAXOSMITHKLINE-A1020535A

PATIENT
  Age: 26 Year
  Sex: Female

DRUGS (2)
  1. LAMICTAL XR [Suspect]
     Indication: GRAND MAL CONVULSION
     Dosage: 300MG UNKNOWN
     Route: 065
     Dates: start: 20130221
  2. NO CONCURRENT MEDICATIONS [Concomitant]

REACTIONS (8)
  - Convulsion [Recovered/Resolved]
  - Aura [Recovered/Resolved]
  - Loss of consciousness [Recovered/Resolved]
  - Disorientation [Recovered/Resolved]
  - Somnolence [Recovered/Resolved]
  - Amnesia [Recovered/Resolved]
  - Drug level decreased [Recovered/Resolved]
  - Headache [Recovered/Resolved]
